FAERS Safety Report 6527744-X (Version None)
Quarter: 2010Q1

REPORT INFORMATION
  Report Type: 
  Country: None (occurrence: None)
  Receive Date: 20100105
  Receipt Date: 20100105
  Transmission Date: 20100710
  Serious: Yes (Other)
  Sender: FDA-Public Use
  Company Number: None

PATIENT
  Age: 55 Year
  Sex: Female
  Weight: 82.5547 kg

DRUGS (2)
  1. TOPIRAMATE [Suspect]
     Dosage: 25 MG PO QD
     Route: 048
  2. TOPIRAMATE [Suspect]
     Indication: HEADACHE
     Dosage: 50 MG PO QD
     Route: 048

REACTIONS (1)
  - DRUG INEFFECTIVE [None]
